FAERS Safety Report 14588207 (Version 1)
Quarter: 2018Q1

REPORT INFORMATION
  Report Type: Report from Study
  Country: US (occurrence: US)
  Receive Date: 20180301
  Receipt Date: 20180301
  Transmission Date: 20180509
  Serious: Yes (Hospitalization)
  Sender: FDA-Public Use
  Company Number: US-CELGENEUS-USA-20180207606

PATIENT
  Age: 54 Year
  Sex: Male

DRUGS (10)
  1. ABRAXANE [Suspect]
     Active Substance: PACLITAXEL
     Indication: NON-SMALL CELL LUNG CANCER
     Route: 041
     Dates: start: 20161019, end: 20170104
  2. CLINDAMYCIN. [Concomitant]
     Active Substance: CLINDAMYCIN
     Indication: INFECTION
     Dosage: 1 PERCENT
     Route: 061
     Dates: start: 20171218, end: 20171220
  3. POTASSIUM CHLORIDE. [Concomitant]
     Active Substance: POTASSIUM CHLORIDE
     Indication: HYPOKALAEMIA
     Dosage: 30 MILLIEQUIVALENTS
     Route: 048
     Dates: start: 20171218, end: 20171218
  4. MPDL3280A (ATEZOLIZUMAB) [Suspect]
     Active Substance: ATEZOLIZUMAB
     Indication: NON-SMALL CELL LUNG CANCER
     Dosage: 1200 MILLIGRAM
     Route: 041
     Dates: start: 20161019, end: 20170104
  5. ACETAMINOPHEN. [Concomitant]
     Active Substance: ACETAMINOPHEN
     Indication: INSOMNIA
     Dosage: 650 MILLIGRAM
     Route: 048
     Dates: start: 20171218, end: 20171218
  6. MELATONIN [Concomitant]
     Active Substance: MELATONIN
     Indication: INSOMNIA
     Route: 048
     Dates: start: 20171219, end: 20171219
  7. CARBOPLATIN. [Suspect]
     Active Substance: CARBOPLATIN
     Indication: NON-SMALL CELL LUNG CANCER
     Dosage: AUC=6
     Route: 041
     Dates: start: 20161019, end: 20170104
  8. ACETAMINOPHEN. [Concomitant]
     Active Substance: ACETAMINOPHEN
     Indication: PAIN
     Dosage: 650 MILLIGRAM
     Route: 048
     Dates: start: 20171219, end: 20171219
  9. ENOXAPARIN [Concomitant]
     Active Substance: ENOXAPARIN
     Indication: ANGIOPATHY
     Dosage: 40 MILLIGRAM
     Route: 058
     Dates: start: 20171219, end: 20171220
  10. METOPROLOL TARTRATE. [Concomitant]
     Active Substance: METOPROLOL TARTRATE
     Indication: HYPERTENSION
     Dosage: 25 MILLIGRAM
     Route: 048
     Dates: start: 20171219, end: 20171220

REACTIONS (1)
  - Hyperglycaemia [Recovered/Resolved]

NARRATIVE: CASE EVENT DATE: 20171217
